FAERS Safety Report 13065676 (Version 1)
Quarter: 2016Q4

REPORT INFORMATION
  Report Type: Spontaneous
  Country: US (occurrence: US)
  Receive Date: 20161227
  Receipt Date: 20161227
  Transmission Date: 20170207
  Serious: No
  Sender: FDA-Public Use
  Company Number: US-BAYER-2016-242601

PATIENT
  Sex: Male

DRUGS (2)
  1. MILK OF MAGNESIA [Suspect]
     Active Substance: MAGNESIUM HYDROXIDE
     Indication: GASTROINTESTINAL DISORDER
     Dosage: 2 DF, UNK (TABLESPOON)
     Route: 048
     Dates: start: 20161221, end: 20161221
  2. MIRALAX [Suspect]
     Active Substance: POLYETHYLENE GLYCOL 3350
     Indication: GASTROINTESTINAL DISORDER
     Dosage: UNK
     Route: 065

REACTIONS (2)
  - Drug ineffective [Unknown]
  - Drug ineffective [Unknown]

NARRATIVE: CASE EVENT DATE: 20161221
